FAERS Safety Report 23317673 (Version 1)
Quarter: 2023Q4

REPORT INFORMATION
  Report Type: Spontaneous
  Country: US (occurrence: None)
  Receive Date: 20231219
  Receipt Date: 20231219
  Transmission Date: 20240110
  Serious: No
  Sender: FDA-Public Use
  Company Number: US-ROCHE-3422046

PATIENT
  Age: 48 Year
  Sex: Male
  Weight: 105.2 kg

DRUGS (8)
  1. HEMLIBRA [Suspect]
     Active Substance: EMICIZUMAB-KXWH
     Indication: Factor VIII deficiency
     Dosage: STRENGTH- 60 MG/0.4ML
     Route: 058
     Dates: start: 202302
  2. HEMLIBRA [Suspect]
     Active Substance: EMICIZUMAB-KXWH
     Indication: Factor VIII deficiency
     Dosage: STRENGTH- 105 MG/ 0.7ML
     Route: 058
     Dates: start: 202302
  3. HEMLIBRA [Suspect]
     Active Substance: EMICIZUMAB-KXWH
     Route: 058
     Dates: start: 20230425
  4. CELECOXIB [Concomitant]
     Active Substance: CELECOXIB
     Route: 048
     Dates: start: 20220915
  5. HYDROCHLOROTHIAZIDE [Concomitant]
     Active Substance: HYDROCHLOROTHIAZIDE
     Route: 048
     Dates: start: 20230725
  6. KLOR-CON M20 [Concomitant]
     Active Substance: POTASSIUM CHLORIDE
     Route: 048
     Dates: start: 20230831, end: 20231027
  7. LISINOPRIL [Concomitant]
     Active Substance: LISINOPRIL
     Route: 048
     Dates: start: 20230725
  8. RECOMBINATE [Concomitant]
     Active Substance: ANTIHEMOPHILIC FACTOR, HUMAN RECOMBINANT
     Dates: start: 20231006, end: 20231012

REACTIONS (2)
  - Haemorrhage [Not Recovered/Not Resolved]
  - Arthralgia [Unknown]

NARRATIVE: CASE EVENT DATE: 20230901
